FAERS Safety Report 13987762 (Version 3)
Quarter: 2017Q4

REPORT INFORMATION
  Report Type: Report from Study
  Country: US (occurrence: US)
  Receive Date: 20170919
  Receipt Date: 20171024
  Transmission Date: 20180321
  Serious: Yes (Hospitalization)
  Sender: FDA-Public Use
  Company Number: US-GILEAD-2017-0293970

PATIENT
  Age: 75 Year
  Sex: Female

DRUGS (13)
  1. LISINOPRIL. [Concomitant]
     Active Substance: LISINOPRIL
  2. AMBRISENTAN [Suspect]
     Active Substance: AMBRISENTAN
     Indication: CREST SYNDROME
  3. AMBRISENTAN [Suspect]
     Active Substance: AMBRISENTAN
     Indication: PULMONARY HYPERTENSION
     Dosage: 10 MG, QD
     Route: 065
     Dates: start: 20141021
  4. K-DUR [Concomitant]
     Active Substance: POTASSIUM CHLORIDE
  5. TRAMADOL. [Concomitant]
     Active Substance: TRAMADOL
  6. SYNTHROID [Concomitant]
     Active Substance: LEVOTHYROXINE SODIUM
  7. HYDRODIURIL [Concomitant]
     Active Substance: HYDROCHLOROTHIAZIDE
  8. ZANTAC [Concomitant]
     Active Substance: RANITIDINE HYDROCHLORIDE
  9. LASIX [Concomitant]
     Active Substance: FUROSEMIDE
  10. REMODULIN [Suspect]
     Active Substance: TREPROSTINIL
     Indication: PRODUCT USED FOR UNKNOWN INDICATION
     Dosage: 1 MG, UNK
     Route: 065
  11. LOFIBRA                            /00465701/ [Concomitant]
  12. ADCIRCA [Concomitant]
     Active Substance: TADALAFIL
     Dosage: 20 MG, UNK
  13. PLAQUENIL                          /00072602/ [Concomitant]
     Active Substance: HYDROXYCHLOROQUINE DIPHOSPHATE

REACTIONS (2)
  - Malaise [Unknown]
  - Pleural effusion [Unknown]
